FAERS Safety Report 5931360-8 (Version None)
Quarter: 2008Q4

REPORT INFORMATION
  Report Type: 
  Country: None (occurrence: None)
  Receive Date: 20081024
  Receipt Date: 20081024
  Transmission Date: 20090506
  Serious: Yes (Life-Threatening, Disabling)
  Sender: FDA-Public Use
  Company Number: None

PATIENT
  Age: 14 Year
  Sex: Female
  Weight: 65 kg

DRUGS (1)
  1. SYMBICORT [Suspect]
     Indication: ASTHMA
     Dosage: 1-2 PUFF Q 24 HR PO
     Route: 048
     Dates: start: 20080101, end: 20081023

REACTIONS (6)
  - CHOKING [None]
  - COUGH [None]
  - DYSPHAGIA [None]
  - MEDICAL DEVICE COMPLICATION [None]
  - SENSATION OF FOREIGN BODY [None]
  - THROAT IRRITATION [None]
